FAERS Safety Report 23023472 (Version 1)
Quarter: 2023Q4

REPORT INFORMATION
  Report Type: Spontaneous
  Country: DE (occurrence: DE)
  Receive Date: 20231003
  Receipt Date: 20231003
  Transmission Date: 20240110
  Serious: Yes (Other)
  Sender: FDA-Public Use
  Company Number: DE-EMBRYOTOX-202205000

PATIENT
  Age: 1 Day
  Sex: Male
  Weight: 2.65 kg

DRUGS (9)
  1. METOPROLOL [Suspect]
     Active Substance: METOPROLOL
     Indication: Product used for unknown indication
     Dosage: 47.5 MILLIGRAM,QD,(47.5 [MG/D])
     Route: 064
     Dates: start: 20220301, end: 20221129
  2. AMITRIPTYLINE [Suspect]
     Active Substance: AMITRIPTYLINE
     Indication: Migraine
     Dosage: 30 MG,QD,(REDUCED TO 10 MG/D DURING PREGNANCY)
     Route: 064
     Dates: start: 20220301, end: 20221129
  3. DIMENHYDRINATE [Concomitant]
     Active Substance: DIMENHYDRINATE
     Indication: Nausea
     Dosage: UNK,PRN,(TAKEN AS NEEDED)
     Route: 064
     Dates: start: 20220301, end: 20221129
  4. NARATRIPTAN [Concomitant]
     Active Substance: NARATRIPTAN HYDROCHLORIDE
     Indication: Migraine
     Dosage: UNK,PRN,(TAKEN AS NEEDED)
     Route: 064
     Dates: start: 20220301, end: 20221129
  5. LEVOTHYROXINE SODIUM [Concomitant]
     Active Substance: LEVOTHYROXINE SODIUM
     Indication: Autoimmune thyroiditis
     Dosage: 125 MICROGRAM,QD,(125 [?G/D])
     Route: 064
     Dates: start: 20220301, end: 20221129
  6. BOTOX [Concomitant]
     Active Substance: ONABOTULINUMTOXINA
     Indication: Migraine
     Dosage: UNK
     Route: 064
  7. FOLIC ACID [Concomitant]
     Active Substance: FOLIC ACID
     Indication: Prophylaxis of neural tube defect
     Dosage: UNK
     Route: 064
     Dates: start: 20220301, end: 20220413
  8. LIOTHYRONINE HYDROCHLORIDE [Concomitant]
     Active Substance: LIOTHYRONINE HYDROCHLORIDE
     Indication: Autoimmune thyroiditis
     Dosage: 10 MICROGRAM,QD,(10 [?G/D])
     Route: 064
     Dates: start: 20220301, end: 20220413
  9. SUMATRIPTAN [Concomitant]
     Active Substance: SUMATRIPTAN
     Indication: Migraine
     Dosage: UNK,PRN,(TAKEN AS NEEDED)
     Route: 064
     Dates: start: 20220301, end: 20221129

REACTIONS (2)
  - Small for dates baby [Recovered/Resolved]
  - Foetal exposure during pregnancy [Unknown]

NARRATIVE: CASE EVENT DATE: 20221101
